FAERS Safety Report 8518820-0 (Version None)
Quarter: 2012Q3

REPORT INFORMATION
  Report Type: 
  Country: None (occurrence: None)
  Receive Date: 20120718
  Receipt Date: 20120716
  Transmission Date: 20120928
  Serious: Yes (Other)
  Sender: FDA-Public Use
  Company Number: PHHY2012SE060725

PATIENT
  Age: 79 Year
  Sex: Female

DRUGS (1)
  1. VOLTAREN [Suspect]
     Indication: BACK PAIN
     Dosage: 50 MG
     Route: 054

REACTIONS (3)
  - GASTROINTESTINAL INFECTION [None]
  - GASTROINTESTINAL INFLAMMATION [None]
  - GASTROINTESTINAL PAIN [None]
